FAERS Safety Report 4694796-1 (Version None)
Quarter: 2005Q2

REPORT INFORMATION
  Report Type: 
  Country: None (occurrence: None)
  Receive Date: 20050620
  Receipt Date: 20050421
  Transmission Date: 20051028
  Serious: No
  Sender: FDA-Public Use
  Company Number: 2005AP02414

PATIENT
  Age: 23010 Day
  Sex: Female

DRUGS (25)
  1. SEROQUEL [Suspect]
     Indication: SCHIZOPHRENIA
     Route: 048
     Dates: start: 20050125, end: 20050125
  2. SEROQUEL [Suspect]
     Route: 048
     Dates: start: 20050126, end: 20050201
  3. SEROQUEL [Suspect]
     Route: 048
     Dates: start: 20050202, end: 20050202
  4. SEROQUEL [Suspect]
     Route: 048
     Dates: start: 20050203, end: 20050210
  5. SEROQUEL [Suspect]
     Route: 048
     Dates: start: 20050211, end: 20050216
  6. SEROQUEL [Suspect]
     Route: 048
     Dates: start: 20050217, end: 20050322
  7. SEROQUEL [Suspect]
     Route: 048
     Dates: start: 20050323, end: 20050327
  8. SEROQUEL [Suspect]
     Route: 048
     Dates: start: 20050328, end: 20050328
  9. TASMOLIN [Suspect]
     Route: 048
     Dates: start: 20041105, end: 20050216
  10. TASMOLIN [Suspect]
     Dosage: DIVIDED INTO 3 DOSES
     Route: 048
     Dates: start: 20050217, end: 20050217
  11. TASMOLIN [Suspect]
     Dosage: DIVIDED INTO 2 DOSES
     Route: 048
     Dates: start: 20050218
  12. SERENACE [Concomitant]
     Dosage: 5-20 MG DAILY
     Route: 048
     Dates: start: 20041110, end: 20050109
  13. SERENACE [Concomitant]
     Dosage: DIVIDED INTO 3 DOSES
     Route: 048
     Dates: start: 20050110, end: 20050111
  14. SERENACE [Concomitant]
     Route: 048
     Dates: start: 20050112, end: 20050124
  15. SERENACE [Concomitant]
     Dosage: DIVIDED INTO 3 DOSES
     Route: 048
     Dates: start: 20050125, end: 20050201
  16. SERENACE [Concomitant]
     Route: 048
     Dates: start: 20050202, end: 20050209
  17. SERENACE [Concomitant]
     Dosage: DIVIDED INTO 3 DOSES
     Route: 048
     Dates: start: 20050210, end: 20050216
  18. SERENACE [Concomitant]
     Route: 048
     Dates: start: 20050217, end: 20050223
  19. SERENACE [Concomitant]
     Dosage: DIVIDED INTO 2 DOSES
     Route: 048
     Dates: start: 20050224, end: 20050405
  20. SERENACE [Concomitant]
     Dosage: DIVIDED INTO 2 DOSES
     Route: 048
     Dates: start: 20050406, end: 20050413
  21. AKINETON [Concomitant]
     Dosage: 6-3 MG DAILY
     Route: 048
     Dates: start: 20041105
  22. LEVOTOMIN [Concomitant]
     Indication: INSOMNIA
     Route: 048
     Dates: start: 20041105
  23. HALCION [Concomitant]
     Indication: INSOMNIA
     Route: 048
     Dates: start: 20041105
  24. LAXOBERON [Concomitant]
     Indication: CONSTIPATION
     Route: 048
     Dates: start: 20041105
  25. DIOVAN [Concomitant]
     Indication: HYPERTENSION
     Route: 048
     Dates: start: 20050121

REACTIONS (1)
  - WHITE BLOOD CELL COUNT DECREASED [None]
